FAERS Safety Report 24784596 (Version 1)
Quarter: 2024Q4

REPORT INFORMATION
  Report Type: Report from Study
  Country: GR (occurrence: GR)
  Receive Date: 20241227
  Receipt Date: 20241227
  Transmission Date: 20250114
  Serious: Yes (Other)
  Sender: VERITY PHARMACEUTICALS INC.
  Company Number: GR-VER-202400013

PATIENT
  Age: 47 Year
  Sex: Female

DRUGS (7)
  1. TRIPTORELIN [Suspect]
     Active Substance: TRIPTORELIN
     Indication: HER2 positive breast cancer
     Dosage: POWDER AND SOLVENT FOR SUSPENSION FOR INJECTION
     Route: 058
     Dates: start: 20190326
  2. TRASTUZUMAB [Suspect]
     Active Substance: TRASTUZUMAB
     Indication: HER2 positive breast cancer
     Dosage: MOST RECENT DOSE ON 04-SEP-2018
     Route: 041
     Dates: start: 20180813
  3. CYCLOPHOSPHAMIDE [Suspect]
     Active Substance: CYCLOPHOSPHAMIDE
     Indication: HER2 positive breast cancer
     Dosage: MOST RECENT DOSE OF CYCLOPHOSPHAMIDE: 07-JUN-2019
     Route: 042
     Dates: start: 20190521
  4. DOCETAXEL [Suspect]
     Active Substance: DOCETAXEL
     Indication: HER2 positive breast cancer
     Dosage: MOST RECENT DOSE OF DOCETAXEL: 06-NOV-2018
     Route: 042
     Dates: start: 20180813
  5. PERTUZUMAB [Suspect]
     Active Substance: PERTUZUMAB
     Indication: HER2 positive breast cancer
     Dosage: MOST RECENT DOSE OF PERTUZUMAB WAS ON 18-APR-2019
     Route: 042
     Dates: start: 20180904
  6. TAMOXIFEN [Suspect]
     Active Substance: TAMOXIFEN
     Indication: HER2 positive breast cancer
     Route: 048
     Dates: start: 20190326
  7. EPIRUBICIN [Suspect]
     Active Substance: EPIRUBICIN
     Indication: HER2 positive breast cancer
     Dosage: MOST RECENT DOSE OF EPIRUBICIN: 07-JUN-2019.
     Route: 042
     Dates: start: 20190521

REACTIONS (1)
  - Neutropenia [Recovered/Resolved]

NARRATIVE: CASE EVENT DATE: 20190521
